FAERS Safety Report 5301171-5 (Version None)
Quarter: 2007Q2

REPORT INFORMATION
  Report Type: 
  Country: None (occurrence: None)
  Receive Date: 20070418
  Receipt Date: 20070409
  Transmission Date: 20071010
  Serious: Yes (Life-Threatening, Other)
  Sender: FDA-Public Use
  Company Number: JP-PFIZER INC-2007027683

PATIENT
  Age: 82 Year
  Sex: Male

DRUGS (5)
  1. SOLU-MEDROL [Suspect]
     Dosage: DAILY DOSE:30MG
     Route: 042
  2. CEFAZOLIN SODIUM [Concomitant]
     Dates: start: 20070224, end: 20070309
  3. LASIX [Concomitant]
     Dosage: DAILY DOSE:20MG
  4. OMEPRAL [Concomitant]
  5. HEPARIN SODIUM [Concomitant]
     Dosage: DAILY DOSE:6ML
     Dates: start: 20070215, end: 20070317

REACTIONS (1)
  - GASTROINTESTINAL PERFORATION [None]
